FAERS Safety Report 7223308-3 (Version None)
Quarter: 2011Q1

REPORT INFORMATION
  Report Type: 
  Country: None (occurrence: None)
  Receive Date: 20110112
  Receipt Date: 20100427
  Transmission Date: 20110831
  Serious: No
  Sender: FDA-Public Use
  Company Number: US-ALLERGAN-1005488US

PATIENT
  Sex: Female

DRUGS (4)
  1. CALCIUM [Concomitant]
  2. FISH OIL [Concomitant]
  3. MULTI-VITAMIN [Concomitant]
  4. RESTASIS [Suspect]
     Indication: DRY EYE
     Dosage: UNK
     Route: 047

REACTIONS (3)
  - EAR PAIN [None]
  - HEADACHE [None]
  - EYE PAIN [None]
